FAERS Safety Report 13420240 (Version 1)
Quarter: 2017Q2

REPORT INFORMATION
  Report Type: Spontaneous
  Country: FR (occurrence: FR)
  Receive Date: 20170407
  Receipt Date: 20170407
  Transmission Date: 20170830
  Serious: Yes (Other)
  Sender: FDA-Public Use
  Company Number: FR-AUROBINDO-AUR-APL-2017-31907

PATIENT
  Age: 59 Year
  Sex: Female

DRUGS (4)
  1. LYSANXIA [Concomitant]
     Active Substance: PRAZEPAM
     Indication: PRODUCT USED FOR UNKNOWN INDICATION
     Route: 065
  2. ZOLPIDEM [Concomitant]
     Active Substance: ZOLPIDEM\ZOLPIDEM TARTRATE
     Indication: PRODUCT USED FOR UNKNOWN INDICATION
     Route: 065
  3. ZOLMITRIPTAN ARROW GENERIQUES ORODISPERSIBLE TABLET [Suspect]
     Active Substance: ZOLMITRIPTAN
     Indication: MIGRAINE WITH AURA
     Dosage: PRN
     Route: 048
  4. FLUOXETINE [Interacting]
     Active Substance: FLUOXETINE HYDROCHLORIDE
     Indication: PRODUCT USED FOR UNKNOWN INDICATION
     Dosage: UNK
     Route: 048

REACTIONS (7)
  - Paraesthesia [Recovered/Resolved]
  - Off label use [Unknown]
  - Palpitations [Recovered/Resolved]
  - Burning sensation [Recovered/Resolved]
  - Extra dose administered [None]
  - Drug interaction [Unknown]
  - Discomfort [Recovered/Resolved]
